FAERS Safety Report 15584256 (Version 2)
Quarter: 2018Q4

REPORT INFORMATION
  Report Type: Report from Study
  Country: JP (occurrence: JP)
  Receive Date: 20181105
  Receipt Date: 20181220
  Transmission Date: 20190205
  Serious: Yes (Hospitalization)
  Sender: FDA-Public Use
  Company Number: JP-UCBSA-2018048499

PATIENT
  Age: 77 Year
  Sex: Male
  Weight: 73 kg

DRUGS (3)
  1. DEPAKENE [Concomitant]
     Active Substance: VALPROIC ACID
     Indication: PARTIAL SEIZURES WITH SECONDARY GENERALISATION
     Route: 048
     Dates: end: 20180606
  2. LACOSAMIDE. [Suspect]
     Active Substance: LACOSAMIDE
     Indication: PARTIAL SEIZURES WITH SECONDARY GENERALISATION
     Dosage: 50 MG, 2X/DAY (BID)
     Route: 048
     Dates: start: 20170816, end: 20170829
  3. LACOSAMIDE. [Suspect]
     Active Substance: LACOSAMIDE
     Indication: EPILEPSY
     Dosage: 100 MG, 2X/DAY (BID)
     Route: 048
     Dates: start: 20170830, end: 20180606

REACTIONS (1)
  - Cerebral haemorrhage [Recovered/Resolved with Sequelae]

NARRATIVE: CASE EVENT DATE: 20180606
